FAERS Safety Report 22825207 (Version 2)
Quarter: 2024Q1

REPORT INFORMATION
  Report Type: Spontaneous
  Country: US (occurrence: US)
  Receive Date: 20230816
  Receipt Date: 20240117
  Transmission Date: 20240410
  Serious: Yes (Hospitalization, Other)
  Sender: FDA-Public Use
  Company Number: US-BRISTOL-MYERS SQUIBB COMPANY-2023-114392

PATIENT
  Age: 70 Year
  Sex: Female
  Weight: 67.59 kg

DRUGS (1)
  1. REVLIMID [Suspect]
     Active Substance: LENALIDOMIDE
     Indication: Plasma cell myeloma
     Dosage: 2W, 2W OFF/14D OF 28DAYS
     Route: 048
     Dates: start: 20230501

REACTIONS (3)
  - Arthropathy [Recovering/Resolving]
  - Thrombosis [Unknown]
  - Off label use [Unknown]
